FAERS Safety Report 7461675-6 (Version None)
Quarter: 2011Q2

REPORT INFORMATION
  Report Type: 
  Country: None (occurrence: None)
  Receive Date: 20110506
  Receipt Date: 20110421
  Transmission Date: 20111010
  Serious: No
  Sender: FDA-Public Use
  Company Number: US-B.I. PHARMACEUTICALS,INC./RIDGEFIELD-2011-BP-03808BP

PATIENT
  Sex: Male

DRUGS (11)
  1. GLIMEPIRIDE [Concomitant]
  2. PRADAXA [Suspect]
     Indication: ANTICOAGULANT THERAPY
  3. PRADAXA [Suspect]
     Indication: ATRIAL FIBRILLATION
     Dosage: 300 MG
     Route: 048
     Dates: start: 20101201
  4. AMLODIPINE BESYLATE [Concomitant]
  5. FUROSEMIDE [Concomitant]
  6. LIPITOR [Concomitant]
  7. METFORMIN [Concomitant]
  8. METOPROLOL SUCCINATE [Concomitant]
  9. PLAVIX [Concomitant]
  10. LISINOPRIL [Concomitant]
  11. HYDRALAZINE HCL [Concomitant]

REACTIONS (4)
  - OEDEMA PERIPHERAL [None]
  - DRY SKIN [None]
  - EYE SWELLING [None]
  - PRURITUS [None]
